FAERS Safety Report 8293784-6 (Version None)
Quarter: 2012Q2

REPORT INFORMATION
  Report Type: 
  Country: None (occurrence: None)
  Receive Date: 20120418
  Receipt Date: 20120411
  Transmission Date: 20120825
  Serious: Yes (Hospitalization)
  Sender: FDA-Public Use
  Company Number: US-BAYER-2011-112467

PATIENT
  Age: 46 Year
  Sex: Female
  Weight: 68.027 kg

DRUGS (3)
  1. YAZ [Suspect]
     Indication: CONTRACEPTION
     Dosage: UNK
     Dates: start: 20080101, end: 20091125
  2. CENTRUM [Concomitant]
  3. RESTASIS [Concomitant]
     Dosage: UNK
     Dates: start: 20091127

REACTIONS (1)
  - RENAL VEIN THROMBOSIS [None]
